FAERS Safety Report 25010916 (Version 2)
Quarter: 2025Q1

REPORT INFORMATION
  Report Type: Spontaneous
  Country: US (occurrence: US)
  Receive Date: 20250225
  Receipt Date: 20250313
  Transmission Date: 20250408
  Serious: No
  Sender: ABBVIE
  Company Number: US-ABBVIE-6150018

PATIENT
  Sex: Female

DRUGS (3)
  1. KYBELLA [Suspect]
     Active Substance: DEOXYCHOLIC ACID
     Indication: Fat tissue increased
     Route: 058
     Dates: start: 20250221, end: 20250221
  2. KYBELLA [Suspect]
     Active Substance: DEOXYCHOLIC ACID
     Indication: Fat tissue increased
     Route: 058
     Dates: start: 202408, end: 202408
  3. KYBELLA [Suspect]
     Active Substance: DEOXYCHOLIC ACID
     Indication: Fat tissue increased
     Route: 058

REACTIONS (2)
  - Injection site pain [Not Recovered/Not Resolved]
  - Injection site swelling [Not Recovered/Not Resolved]
